FAERS Safety Report 6741904-4 (Version None)
Quarter: 2010Q2

REPORT INFORMATION
  Report Type: 
  Country: None (occurrence: None)
  Receive Date: 20100526
  Receipt Date: 20100520
  Transmission Date: 20101027
  Serious: Yes (Death, Hospitalization)
  Sender: FDA-Public Use
  Company Number: A0857563A

PATIENT
  Age: 70 Year
  Sex: Female

DRUGS (2)
  1. PROMACTA [Suspect]
     Indication: IDIOPATHIC THROMBOCYTOPENIC PURPURA
     Dosage: 75MG PER DAY
     Route: 048
     Dates: start: 20090428, end: 20090615
  2. CORTICOSTEROIDS [Concomitant]

REACTIONS (7)
  - GINGIVAL BLEEDING [None]
  - HAEMORRHAGE [None]
  - NON-HODGKIN'S LYMPHOMA [None]
  - PLATELET COUNT DECREASED [None]
  - PYREXIA [None]
  - THROMBOCYTOPENIA [None]
  - TONGUE BITING [None]
